FAERS Safety Report 21188629 (Version 2)
Quarter: 2022Q3

REPORT INFORMATION
  Report Type: Spontaneous
  Country: DE (occurrence: DE)
  Receive Date: 20220809
  Receipt Date: 20220830
  Transmission Date: 20221026
  Serious: Yes (Hospitalization)
  Sender: FDA-Public Use
  Company Number: DE-ORGANON-O2207DEU001591

PATIENT
  Age: 66 Year
  Sex: Female
  Weight: 62 kg

DRUGS (19)
  1. ATORVASTATIN [Suspect]
     Active Substance: ATORVASTATIN
     Indication: Hypercholesterolaemia
     Dosage: 40 MILLIGRAM, (40 MILLIGRAM, QD)ONCE A DAY
     Route: 048
     Dates: start: 20220704
  2. ATORVASTATIN [Suspect]
     Active Substance: ATORVASTATIN
     Indication: Condition aggravated
     Dosage: 40 MILLIGRAM, (40 MILLIGRAM, QD)ONCE A DAY
     Route: 048
     Dates: start: 20220311
  3. CANDESARTAN [Suspect]
     Active Substance: CANDESARTAN
     Indication: Hypertension
     Dosage: 32 MILLIGRAM, (32 MILLIGRAM, QD)ONCE A DAY
     Route: 048
     Dates: start: 20220311
  4. CANDESARTAN [Suspect]
     Active Substance: CANDESARTAN
     Indication: Condition aggravated
     Dosage: 0.16 MILLIGRAM,(0.16 MILLIGRAM, QD) ONCE A DAY
     Route: 048
     Dates: start: 20220705
  5. EZETIMIBE [Suspect]
     Active Substance: EZETIMIBE
     Indication: Hypercholesterolaemia
     Dosage: 10 MILLIGRAM, (10 MILLIGRAM, QD)ONCE A DAY
     Route: 048
     Dates: start: 20220311
  6. EZETIMIBE [Suspect]
     Active Substance: EZETIMIBE
     Indication: Condition aggravated
     Dosage: 10 MILLIGRAM,(10 MILLIGRAM, QD) ONCE A DAY
     Route: 048
     Dates: start: 20220704
  7. HYDROCHLOROTHIAZIDE [Suspect]
     Active Substance: HYDROCHLOROTHIAZIDE
     Indication: Condition aggravated
     Dosage: 25 MILLIGRAM,(25 MILLIGRAM, QD) ONCE A DAY
     Route: 048
     Dates: start: 20220705
  8. HYDROCHLOROTHIAZIDE [Suspect]
     Active Substance: HYDROCHLOROTHIAZIDE
     Indication: Hypertension
     Dosage: 25 MILLIGRAM,(25 MILLIGRAM, QD) ONCE A DAY
     Route: 048
     Dates: start: 20220311
  9. ASPIRIN [Suspect]
     Active Substance: ASPIRIN
     Indication: Anticoagulant therapy
     Dosage: 100 MILLIGRAM,(100 MILLIGRAM, QD) ONCE A DAY
     Route: 048
     Dates: start: 20220705
  10. ASPIRIN [Suspect]
     Active Substance: ASPIRIN
     Indication: Condition aggravated
     Dosage: 100 MILLIGRAM,(100 MILLIGRAM, QD) ONCE A DAY
     Route: 048
     Dates: start: 20220311
  11. CARBOPLATIN [Suspect]
     Active Substance: CARBOPLATIN
     Indication: Non-small cell lung cancer stage III
     Dosage: AREA UNDER THE CURVE (AUC) 2 MG/ML/MIN ON DAY 1, 8 AND 15 IN CYCLE 2 AND 3; CYCLICAL
     Route: 042
     Dates: start: 20220509, end: 20220614
  12. CARBOPLATIN [Suspect]
     Active Substance: CARBOPLATIN
     Dosage: AREA UNDER THE CURVE (AUC) 6 MG/ML/MIN ON DAY 1 IN CYCLE 1, ONCE
     Route: 042
     Dates: start: 20220419, end: 20220419
  13. INDACATEROL [Suspect]
     Active Substance: INDACATEROL
     Indication: Condition aggravated
     Dosage: 85 MICROGRAM, (85 MICROGRAM, QD; FORMULATION REPORTED AS INHALANT)ONCE A DAY
     Dates: start: 20220705
  14. METOPROLOL [Suspect]
     Active Substance: METOPROLOL
     Indication: Condition aggravated
     Dosage: 47.5 MILLIGRAM, (47.5 MILLIGRAM, QD)ONCE A DAY
     Route: 048
     Dates: start: 20220705
  15. METOPROLOL [Suspect]
     Active Substance: METOPROLOL
     Indication: Hypertension
     Dosage: 47.5 MILLIGRAM, (47.5 MILLIGRAM, QD)ONCE A DAY
     Route: 048
     Dates: start: 20220311
  16. PACLITAXEL [Suspect]
     Active Substance: PACLITAXEL
     Indication: Non-small cell lung cancer stage III
     Dosage: 200 MILLIGRAM/SQ. METER (200 MG/M2, ON DAY 1 IN CYCLE 1; (DOSE ALSO REPORTED AS 314 MG), ONCE)
     Route: 042
     Dates: start: 20220419, end: 20220419
  17. PACLITAXEL [Suspect]
     Active Substance: PACLITAXEL
     Dosage: 45 MILLIGRAM/SQ. METER (45 MG/M2, ON DAY 1, 8 AND 15 IN CYCLE 2 AND 3 CYCLICAL)
     Route: 042
     Dates: start: 20220509, end: 20220614
  18. PEMBROLIZUMAB [Suspect]
     Active Substance: PEMBROLIZUMAB
     Indication: Non-small cell lung cancer stage III
     Dosage: UNK
     Route: 065
  19. ZOPICLONE [Concomitant]
     Active Substance: ZOPICLONE
     Indication: Insomnia
     Dosage: 3.75 MILLIGRAM, (3.75 MILLIGRAM, QD)ONCE A DAY
     Route: 048
     Dates: start: 20220607

REACTIONS (3)
  - Chronic obstructive pulmonary disease [Recovered/Resolved]
  - Radiation pneumonitis [Recovered/Resolved]
  - Product use in unapproved indication [Unknown]

NARRATIVE: CASE EVENT DATE: 20220629
